FAERS Safety Report 25018860 (Version 1)
Quarter: 2025Q1

REPORT INFORMATION
  Report Type: Spontaneous
  Country: US (occurrence: US)
  Receive Date: 20250227
  Receipt Date: 20250227
  Transmission Date: 20250408
  Serious: No
  Sender: AVADEL CNS PHARMACEUTICALS, LLC
  Company Number: US-AVADEL CNS PHARMACEUTICALS, LLC-2024AVA02465

PATIENT
  Age: 37 Year
  Sex: Male
  Weight: 111.11 kg

DRUGS (2)
  1. LUMRYZ [Suspect]
     Active Substance: SODIUM OXYBATE
     Indication: Narcolepsy
     Dosage: 7.5 G, ONCE NIGHTLY
     Route: 048
     Dates: end: 202412
  2. SUNOSI [Concomitant]
     Active Substance: SOLRIAMFETOL

REACTIONS (9)
  - Apnoea [Recovered/Resolved]
  - Respiratory rate decreased [Recovered/Resolved]
  - Abnormal sleep-related event [Recovered/Resolved]
  - Moaning [Recovered/Resolved]
  - Respiration abnormal [Recovered/Resolved]
  - Abdominal discomfort [Recovered/Resolved]
  - Dizziness [Recovered/Resolved]
  - Nausea [Recovered/Resolved]
  - Decreased appetite [Recovered/Resolved]

NARRATIVE: CASE EVENT DATE: 20241101
